FAERS Safety Report 9891343 (Version 1)
Quarter: 2014Q1

REPORT INFORMATION
  Report Type: Spontaneous
  Country: AT (occurrence: None)
  Receive Date: 20140207
  Receipt Date: 20140207
  Transmission Date: 20141002
  Serious: Yes (Hospitalization)
  Sender: FDA-Public Use
  Company Number: FK201400334

PATIENT
  Age: 80 Year
  Sex: Male

DRUGS (10)
  1. FUROSEMIDE (MANUFACTURER UNKNOWN) (FUROSEMIDE) (FUROSEMIDE) [Suspect]
     Indication: DIURETIC THERAPY
  2. HYDROCHLOROTHIAZIDE (HYDROCHLOROTHIAZIDE) [Suspect]
     Indication: DIURETIC THERAPY
  3. RIVAROXABAN [Suspect]
     Indication: ANTICOAGULANT THERAPY
     Dosage: 20 MG, UNKNOWN, UNKNOWN
     Dates: start: 201211, end: 201301
  4. ENALAPRIL (ENALAPRIL) [Concomitant]
  5. ALLOPURINOL (ALLOPURINOL) [Concomitant]
  6. BISOPROLOL (BISOPROLOL) [Concomitant]
  7. SIMVASTATIN (SIMVASTATIN) [Concomitant]
  8. AMLODIPINE (AMLODIPINE) [Concomitant]
  9. CIPROFLOXACIN (CIPROFLOXACIN) [Concomitant]
  10. CARBAMAZEPINE (CARBAMAZEPINE) [Concomitant]

REACTIONS (7)
  - Urosepsis [None]
  - Leukocytosis [None]
  - Urinary tract infection pseudomonal [None]
  - Epididymitis [None]
  - Epilepsy [None]
  - Cerebrovascular accident [None]
  - Diarrhoea [None]
